FAERS Safety Report 24843232 (Version 2)
Quarter: 2025Q3

REPORT INFORMATION
  Report Type: Report from Study
  Country: GB (occurrence: GB)
  Receive Date: 20250115
  Receipt Date: 20250809
  Transmission Date: 20251020
  Serious: Yes (Hospitalization)
  Sender: ALEXION PHARMACEUTICALS
  Company Number: GB-AstraZeneca-CH-00781797A

PATIENT
  Age: 63 Year
  Sex: Male

DRUGS (1)
  1. BENRALIZUMAB [Suspect]
     Active Substance: BENRALIZUMAB
     Indication: Asthma

REACTIONS (4)
  - Dizziness [Unknown]
  - Weight decreased [Unknown]
  - Cough [Unknown]
  - Dyspnoea [Unknown]
